FAERS Safety Report 8204856-6 (Version None)
Quarter: 2012Q1

REPORT INFORMATION
  Report Type: 
  Country: None (occurrence: None)
  Receive Date: 20120309
  Receipt Date: 20120228
  Transmission Date: 20120608
  Serious: Yes (Hospitalization)
  Sender: FDA-Public Use
  Company Number: 1212032

PATIENT
  Age: 68 Year
  Sex: Female

DRUGS (9)
  1. RAMIPRIL [Concomitant]
  2. BISOPROLOL FUMARATE [Concomitant]
  3. (URBASON /00049601/) [Concomitant]
  4. PACLITAXEL [Concomitant]
  5. LASIX [Concomitant]
  6. (NAVOBAN) [Concomitant]
  7. CARBOPLATIN [Suspect]
     Indication: OVARIAN CANCER
     Dosage: 390 MG MILLIGRAM(S), INTRAVENOUS DRIP
     Route: 041
     Dates: start: 20111110, end: 20120222
  8. (TRIMETON /00072502/) [Concomitant]
  9. (RANIDIL) [Concomitant]

REACTIONS (3)
  - ERYTHEMA [None]
  - HYPERGLYCAEMIA [None]
  - HYPERTENSIVE CRISIS [None]
